FAERS Safety Report 5935011-8 (Version None)
Quarter: 2008Q4

REPORT INFORMATION
  Report Type: 
  Country: None (occurrence: None)
  Receive Date: 20081015
  Receipt Date: 20080715
  Transmission Date: 20090506
  Serious: Yes (Other)
  Sender: FDA-Public Use
  Company Number: 17554

PATIENT
  Age: 48 Year
  Sex: Female
  Weight: 95.2554 kg

DRUGS (7)
  1. EPIRUBICIN [Suspect]
     Indication: SMALL INTESTINE CARCINOMA RECURRENT
     Dates: start: 20070727, end: 20070817
  2. OXALIPLATIN [Suspect]
     Indication: GASTRIC CANCER
     Dosage: 250 MG Q21 DAYS IV
     Route: 042
     Dates: start: 20070727, end: 20070817
  3. OXALIPLATIN [Suspect]
     Indication: SMALL INTESTINE CARCINOMA RECURRENT
     Dosage: 250 MG Q21 DAYS IV
     Route: 042
     Dates: start: 20070727, end: 20070817
  4. XELODA [Suspect]
  5. FERROUS SULFATE [Concomitant]
  6. STOOL SOFTENER [Concomitant]
  7. PRILOSEC [Concomitant]

REACTIONS (3)
  - CHEMOTHERAPY EXTRAVASATION MANAGEMENT [None]
  - INFUSION SITE EXTRAVASATION [None]
  - SOFT TISSUE NECROSIS [None]
